FAERS Safety Report 15880676 (Version 1)
Quarter: 2019Q1

REPORT INFORMATION
  Report Type: Spontaneous
  Country: CN (occurrence: CN)
  Receive Date: 20190128
  Receipt Date: 20190128
  Transmission Date: 20190417
  Serious: Yes (Other)
  Sender: FDA-Public Use
  Company Number: CN-INGENUS PHARMACEUTICALS NJ, LLC-ING201901-000044

PATIENT
  Age: 51 Year
  Sex: Female

DRUGS (1)
  1. CARISOPRODOL, ASPIRIN AND CODEINE PHOSPHATE [Suspect]
     Active Substance: ASPIRIN\CARISOPRODOL\CODEINE PHOSPHATE

REACTIONS (7)
  - Hypotension [Recovered/Resolved]
  - Haemoglobin decreased [Recovered/Resolved]
  - Gallbladder rupture [Recovered/Resolved]
  - Abdominal pain [Recovered/Resolved]
  - Haematocoele [Recovered/Resolved]
  - Haemobilia [Recovered/Resolved]
  - Arterial haemorrhage [Recovered/Resolved]
